FAERS Safety Report 7706301-3 (Version None)
Quarter: 2011Q3

REPORT INFORMATION
  Report Type: 
  Country: None (occurrence: None)
  Receive Date: 20110824
  Receipt Date: 20110822
  Transmission Date: 20111222
  Serious: Yes (Other)
  Sender: FDA-Public Use
  Company Number: TW-PFIZER INC-2007047551

PATIENT
  Age: 60 Year
  Sex: Female

DRUGS (3)
  1. HYDROCORTISONE SODIUM SUCCINATE [Suspect]
     Dosage: 50 MG, UNK
     Route: 037
     Dates: start: 20040901
  2. CYTARABINE [Suspect]
     Dosage: 30 MG, UNK
     Route: 037
     Dates: start: 20040901
  3. METHOTREXATE [Suspect]
     Dosage: 12 MG, UNK
     Route: 037
     Dates: start: 20040901

REACTIONS (4)
  - MUSCULAR WEAKNESS [None]
  - URINARY INCONTINENCE [None]
  - MYELOPATHY [None]
  - SENSORIMOTOR DISORDER [None]
